FAERS Safety Report 5447662-8 (Version None)
Quarter: 2007Q3

REPORT INFORMATION
  Report Type: 
  Country: None (occurrence: None)
  Receive Date: 20070910
  Receipt Date: 20070907
  Transmission Date: 20080115
  Serious: Yes (Other)
  Sender: FDA-Public Use
  Company Number: A0679012A

PATIENT
  Age: 41 Year
  Sex: Female

DRUGS (1)
  1. ALLI [Suspect]
     Indication: DRUG USE FOR UNKNOWN INDICATION
     Route: 048
     Dates: start: 20070818

REACTIONS (4)
  - ANAL HAEMORRHAGE [None]
  - FAECAL VOLUME INCREASED [None]
  - FAECES HARD [None]
  - GASTROINTESTINAL DISORDER [None]
